FAERS Safety Report 9448391 (Version 2)
Quarter: 2013Q3

REPORT INFORMATION
  Report Type: Spontaneous
  Country: US (occurrence: US)
  Receive Date: 20130808
  Receipt Date: 20130905
  Transmission Date: 20140515
  Serious: Yes (Other)
  Sender: FDA-Public Use
  Company Number: US-BRACCO-009741

PATIENT
  Age: 60 Year
  Sex: Male
  Weight: 57 kg

DRUGS (5)
  1. MULTIHANCE [Suspect]
     Indication: NUCLEAR MAGNETIC RESONANCE IMAGING BRAIN
     Dosage: GIVEN AT 3:10 PM
     Route: 042
     Dates: start: 20130801, end: 20130801
  2. MULTIHANCE [Suspect]
     Indication: ANGIOGRAM
     Dosage: GIVEN AT 3:10 PM
     Route: 042
     Dates: start: 20130801, end: 20130801
  3. GEMFIBROZIL [Concomitant]
     Route: 048
  4. ATENOLOL [Concomitant]
  5. PROAIR HFA [Concomitant]
     Dosage: 90 MCG/ACTUATION AS NEEDED
     Route: 055

REACTIONS (2)
  - Hypersensitivity [Recovered/Resolved]
  - Atrial fibrillation [Recovered/Resolved]
